FAERS Safety Report 7825971-2 (Version None)
Quarter: 2011Q4

REPORT INFORMATION
  Report Type: 
  Country: None (occurrence: None)
  Receive Date: 20111019
  Receipt Date: 20111010
  Transmission Date: 20120403
  Serious: Yes (Other)
  Sender: FDA-Public Use
  Company Number: US-ROCHE-1004231

PATIENT

DRUGS (1)
  1. VESANOID [Suspect]
     Indication: ACNE

REACTIONS (4)
  - DERMATITIS EXFOLIATIVE [None]
  - DRY SKIN [None]
  - BURNING SENSATION [None]
  - ERYTHEMA [None]
